FAERS Safety Report 18848983 (Version 2)
Quarter: 2021Q1

REPORT INFORMATION
  Report Type: Spontaneous
  Country: US (occurrence: US)
  Receive Date: 20210205
  Receipt Date: 20210224
  Transmission Date: 20210419
  Serious: No
  Sender: FDA-Public Use
  Company Number: US-SA-2021SA033701

PATIENT
  Sex: Male

DRUGS (1)
  1. DUPIXENT [Suspect]
     Active Substance: DUPILUMAB
     Indication: DERMATITIS ATOPIC
     Dosage: 300 MG, QOW
     Route: 058
     Dates: start: 20191213

REACTIONS (4)
  - Angular cheilitis [Unknown]
  - Lip erythema [Unknown]
  - Dry skin [Unknown]
  - Lip dry [Unknown]

NARRATIVE: CASE EVENT DATE: 202011
